FAERS Safety Report 5486014-1 (Version None)
Quarter: 2007Q4

REPORT INFORMATION
  Report Type: 
  Country: None (occurrence: None)
  Receive Date: 20071015
  Receipt Date: 20071002
  Transmission Date: 20080405
  Serious: Yes (Hospitalization, Disabling, Other)
  Sender: FDA-Public Use
  Company Number: US-GILEAD-2007-0013461

PATIENT
  Sex: Female
  Weight: 20 kg

DRUGS (3)
  1. VIREAD [Suspect]
     Indication: HIV INFECTION
     Route: 048
     Dates: start: 20050101, end: 20070912
  2. KALETRA [Suspect]
     Indication: HIV INFECTION
     Route: 048
     Dates: start: 20050101, end: 20070912
  3. DDI [Suspect]
     Indication: HIV INFECTION
     Route: 048
     Dates: start: 20050101, end: 20070912

REACTIONS (4)
  - FANCONI SYNDROME [None]
  - HYPERGLYCAEMIA [None]
  - NEPHROGENIC DIABETES INSIPIDUS [None]
  - WEIGHT DECREASED [None]
